FAERS Safety Report 13791536 (Version 1)
Quarter: 2017Q3

REPORT INFORMATION
  Report Type: Spontaneous
  Country: US (occurrence: US)
  Receive Date: 20170725
  Receipt Date: 20170725
  Transmission Date: 20171127
  Serious: No
  Sender: FDA-Public Use
  Company Number: US-ALLERGAN-1715718US

PATIENT
  Age: 55 Year
  Sex: Male
  Weight: 82.54 kg

DRUGS (1)
  1. TRELSTAR [Suspect]
     Active Substance: TRIPTORELIN PAMOATE
     Indication: PROSTATE CANCER
     Dosage: UNK, SINGLE
     Route: 030

REACTIONS (1)
  - Nocturia [Unknown]

NARRATIVE: CASE EVENT DATE: 20170123
